FAERS Safety Report 12336087 (Version 4)
Quarter: 2016Q3

REPORT INFORMATION
  Report Type: Spontaneous
  Country: US (occurrence: US)
  Receive Date: 20160505
  Receipt Date: 20160801
  Transmission Date: 20161109
  Serious: No
  Sender: FDA-Public Use
  Company Number: US-PFIZER INC-2016242245

PATIENT
  Age: 74 Year
  Sex: Female
  Weight: 90.7 kg

DRUGS (3)
  1. IBRANCE [Suspect]
     Active Substance: PALBOCICLIB
     Dosage: 125 MG, CYCLIC (ONCE A DAY 1-21 EVERY 28 DAYS)
     Route: 048
     Dates: start: 20160309
  2. IBRANCE [Suspect]
     Active Substance: PALBOCICLIB
     Indication: BREAST CANCER METASTATIC
     Dosage: 125 MG, CYCLIC (ONCE A DAY 1-21 EVERY 28 DAYS)
     Route: 048
     Dates: start: 20160309
  3. IBRANCE [Suspect]
     Active Substance: PALBOCICLIB
     Dosage: 125 MG, CYCLIC (ONCE A DAY, 1 CAPSULE, DAYS 1-21 EVERY 28 DAYS)
     Route: 048

REACTIONS (8)
  - Pyrexia [Unknown]
  - Cough [Not Recovered/Not Resolved]
  - Productive cough [Unknown]
  - Eye pain [Unknown]
  - Fatigue [Recovering/Resolving]
  - Oral pain [Unknown]
  - Onychoclasis [Unknown]
  - Upper respiratory tract infection [Unknown]
